FAERS Safety Report 23140958 (Version 1)
Quarter: 2023Q4

REPORT INFORMATION
  Report Type: Spontaneous
  Country: US (occurrence: US)
  Receive Date: 20231103
  Receipt Date: 20231103
  Transmission Date: 20240110
  Serious: Yes (Other)
  Sender: FDA-Public Use
  Company Number: US-JNJFOC-20231068599

PATIENT
  Age: 0 Year

DRUGS (3)
  1. TYLENOL [Suspect]
     Active Substance: ACETAMINOPHEN
     Indication: Migraine prophylaxis
     Dosage: 500-1000 MG
     Route: 064
  2. IBUPROFEN [Suspect]
     Active Substance: IBUPROFEN
     Indication: Migraine prophylaxis
     Route: 064
  3. NURTEC ODT [Suspect]
     Active Substance: RIMEGEPANT SULFATE
     Indication: Migraine prophylaxis
     Dosage: TOOK NURTEC ODT 75MG PRN BUT SWITCHED TO TAKING QOD FOR PREVENTION CLOSEST TO THE PREGNANCY
     Route: 064
     Dates: start: 202109, end: 202112

REACTIONS (3)
  - Acquired plagiocephaly [Recovered/Resolved with Sequelae]
  - Foetal exposure during pregnancy [Unknown]
  - Gross motor delay [Not Recovered/Not Resolved]

NARRATIVE: CASE EVENT DATE: 20221101
